FAERS Safety Report 7343351-3 (Version None)
Quarter: 2011Q1

REPORT INFORMATION
  Report Type: 
  Country: None (occurrence: None)
  Receive Date: 20110228
  Receipt Date: 20110216
  Transmission Date: 20110831
  Serious: Yes (Other)
  Sender: FDA-Public Use
  Company Number: WAES 1003USA00780

PATIENT
  Age: 65 Year
  Sex: Female

DRUGS (11)
  1. HYDROXYUREA [Concomitant]
  2. SOSORBIDE  MONONITRATE [Concomitant]
  3. QUININESO4 [Concomitant]
  4. BISOPROLOL [Concomitant]
  5. LANSOPRAZOLE [Concomitant]
  6. VYTORIN [Suspect]
     Indication: ACUTE CORONARY SYNDROME
     Dosage: 10-40 MG/DAILY/PO
     Route: 048
     Dates: start: 20090701
  7. RAMIPRIL [Concomitant]
  8. WARFARIN SODIUM [Concomitant]
  9. PLACEBO [Suspect]
     Indication: ACUTE CORONARY SYNDROME
     Dosage: PO
     Route: 048
     Dates: start: 20090701
  10. PLACEBO [Suspect]
     Indication: ACUTE CORONARY SYNDROME
     Dosage: PO
     Route: 048
     Dates: start: 20090701
  11. ASPIRIN [Concomitant]

REACTIONS (1)
  - SQUAMOUS CELL CARCINOMA [None]
